FAERS Safety Report 6071081-7 (Version None)
Quarter: 2009Q1

REPORT INFORMATION
  Report Type: 
  Country: None (occurrence: None)
  Receive Date: 20090209
  Receipt Date: 20090121
  Transmission Date: 20090719
  Serious: No
  Sender: FDA-Public Use
  Company Number: A0752022A

PATIENT
  Age: 37 Year
  Sex: Female

DRUGS (2)
  1. PAXIL CR [Suspect]
     Dosage: 37.5MG PER DAY
     Route: 048
     Dates: start: 20080601
  2. NO CONCURRENT MEDICATIONS [Concomitant]

REACTIONS (4)
  - FATIGUE [None]
  - MENTAL IMPAIRMENT [None]
  - RASH [None]
  - SOMNOLENCE [None]
